FAERS Safety Report 5469319-X (Version None)
Quarter: 2007Q3

REPORT INFORMATION
  Report Type: 
  Country: None (occurrence: None)
  Receive Date: 20070927
  Receipt Date: 20070917
  Transmission Date: 20080115
  Serious: Yes (Death, Other)
  Sender: FDA-Public Use
  Company Number: ES-BRISTOL-MYERS SQUIBB COMPANY-13921192

PATIENT
  Age: 16 Year
  Sex: Male

DRUGS (7)
  1. LYSODREN [Suspect]
     Indication: ADRENAL GLAND CANCER METASTATIC
     Dosage: DOSE WAS 2G/DAY TO 9G/DAY.
     Route: 048
     Dates: start: 20070419, end: 20070826
  2. VP-16 [Suspect]
     Indication: ADRENAL GLAND CANCER METASTATIC
  3. DOXORUBICIN HCL [Suspect]
     Indication: ADRENAL GLAND CANCER METASTATIC
  4. ASTONIN-H [Concomitant]
     Dates: start: 20070618, end: 20070826
  5. HIDROALTESONA [Concomitant]
     Dates: start: 20070618, end: 20070826
  6. REXER [Concomitant]
     Dates: start: 20070618, end: 20070826
  7. OMEPRAZOLE [Concomitant]
     Dates: start: 20070618, end: 20070826

REACTIONS (4)
  - CEREBRAL THROMBOSIS [None]
  - DEATH [None]
  - DRUG LEVEL ABOVE THERAPEUTIC [None]
  - VOMITING [None]
